FAERS Safety Report 25524605 (Version 1)
Quarter: 2025Q3

REPORT INFORMATION
  Report Type: Spontaneous
  Country: CN (occurrence: CN)
  Receive Date: 20250707
  Receipt Date: 20250707
  Transmission Date: 20251020
  Serious: Yes (Hospitalization)
  Sender: GALDERMA
  Company Number: CN-GALDERMA-CN2025011743

PATIENT

DRUGS (2)
  1. BENZOYL PEROXIDE [Suspect]
     Active Substance: BENZOYL PEROXIDE
     Indication: Acne
     Route: 061
     Dates: start: 20250624, end: 20250624
  2. FUSIDIC ACID [Concomitant]
     Active Substance: FUSIDIC ACID
     Indication: Acne
     Route: 061
     Dates: start: 20250624, end: 20250624

REACTIONS (15)
  - Dermatitis contact [Recovering/Resolving]
  - Erythema [Recovering/Resolving]
  - Application site dryness [Recovering/Resolving]
  - Application site exfoliation [Recovering/Resolving]
  - Application site pruritus [Recovering/Resolving]
  - Application site injury [Recovering/Resolving]
  - Skin burning sensation [Recovering/Resolving]
  - Milia [Recovering/Resolving]
  - Application site papules [Recovering/Resolving]
  - Application site vesicles [Recovering/Resolving]
  - Application site erosion [Recovering/Resolving]
  - Effusion [Recovering/Resolving]
  - Application site warmth [Recovering/Resolving]
  - Skin tightness [Recovering/Resolving]
  - Condition aggravated [Recovering/Resolving]

NARRATIVE: CASE EVENT DATE: 20250601
